FAERS Safety Report 4977696-9 (Version None)
Quarter: 2006Q2

REPORT INFORMATION
  Report Type: 
  Country: None (occurrence: None)
  Receive Date: 20060420
  Receipt Date: 20051216
  Transmission Date: 20061013
  Serious: No
  Sender: FDA-Public Use
  Company Number: US-GLAXOSMITHKLINE-A0586114A

PATIENT
  Sex: Female

DRUGS (17)
  1. ESKALITH CR [Suspect]
     Indication: DRUG USE FOR UNKNOWN INDICATION
     Route: 048
  2. WELLBUTRIN SR [Suspect]
     Indication: DEPRESSION
     Dosage: 100MG PER DAY
     Route: 048
  3. LITHIUM CARBONATE [Suspect]
     Dosage: 450MG PER DAY
     Route: 048
  4. ALTACE [Concomitant]
  5. IMDUR [Concomitant]
  6. THYROID REPLACEMENT [Concomitant]
  7. TOPROL-XL [Concomitant]
  8. HUMALOG [Concomitant]
  9. LANTUS [Concomitant]
  10. ECOTRIN [Concomitant]
  11. NORVASC [Concomitant]
  12. CENTRUM VITAMIN [Concomitant]
     Route: 065
  13. VYTORIN [Concomitant]
  14. LASIX [Concomitant]
  15. CITRICAL+D [Concomitant]
     Route: 065
  16. ACTOS [Concomitant]
  17. KLOR-CON [Concomitant]

REACTIONS (1)
  - TREMOR [None]
